FAERS Safety Report 21170778 (Version 1)
Quarter: 2022Q3

REPORT INFORMATION
  Report Type: Spontaneous
  Country: US (occurrence: US)
  Receive Date: 20220804
  Receipt Date: 20220804
  Transmission Date: 20221027
  Serious: No
  Sender: FDA-Public Use
  Company Number: US-BAYER-2022A103692

PATIENT
  Age: 75 Year
  Sex: Female

DRUGS (1)
  1. MIRALAX [Suspect]
     Active Substance: POLYETHYLENE GLYCOL 3350
     Dosage: 30 G, QD, ONCE A DAY 30GRAMS
     Route: 048
     Dates: start: 2021, end: 20220721

REACTIONS (2)
  - Extra dose administered [Recovered/Resolved with Sequelae]
  - Product use issue [Recovered/Resolved with Sequelae]
